FAERS Safety Report 6016229-5 (Version None)
Quarter: 2008Q4

REPORT INFORMATION
  Report Type: 
  Country: None (occurrence: None)
  Receive Date: 20081218
  Receipt Date: 20081209
  Transmission Date: 20090506
  Serious: Yes (Death, Hospitalization)
  Sender: FDA-Public Use
  Company Number: 2008US002811

PATIENT
  Age: 42 Year
  Sex: Male

DRUGS (18)
  1. PROGRAF [Suspect]
     Indication: LIVER TRANSPLANT
     Dosage: 3 MG, BID, ORAL; 2 MG, BID,ORAL; 4 MG, BID, ORAL
     Route: 048
     Dates: start: 20080701
  2. PROGRAF [Suspect]
     Indication: LIVER TRANSPLANT
     Dosage: 3 MG, BID, ORAL; 2 MG, BID,ORAL; 4 MG, BID, ORAL
     Route: 048
     Dates: start: 20080708
  3. SYNTHORID   (LEVOTHYROXINE SODIUM) [Concomitant]
  4. PERCOCET [Concomitant]
  5. COLACE (DOCUSATE SODIUM) [Concomitant]
  6. MIRALAX (MACROGOL) POWDER [Concomitant]
  7. ABILIFY [Concomitant]
  8. RESTORIL [Concomitant]
  9. PROCARDIA [Concomitant]
  10. HUMALOG (INSULIN LISPRO PROTAMINE SUSPENSION, INSULIN LISPRO) [Concomitant]
  11. RANITIDINE [Concomitant]
  12. NEXIUM (ESOMEPRAZOLE SODIUM) [Concomitant]
  13. EFFEXOR (VENALFAXINE) [Concomitant]
  14. BACTRIM [Concomitant]
  15. MULTIVIAMIN (SELENIUM, IODINE, ZINC, COPPER, CHROMIUM, MANGANESE, MAGN [Concomitant]
  16. ATIVAN [Concomitant]
  17. EPIVIR [Concomitant]
  18. LABETALOL HCL [Concomitant]

REACTIONS (1)
  - HEPATIC NEOPLASM MALIGNANT [None]
